FAERS Safety Report 9563714 (Version 1)
Quarter: 2013Q3

REPORT INFORMATION
  Report Type: Spontaneous
  Country: DE (occurrence: None)
  Receive Date: 20130705
  Receipt Date: 20130705
  Transmission Date: 20140515
  Serious: Yes (Hospitalization)
  Sender: FDA-Public Use
  Company Number: 2013/133

PATIENT
  Age: 73 Year
  Sex: Male

DRUGS (1)
  1. LEVETIRACETAM (NO PREF. NAME) [Suspect]
     Indication: PARTIAL SEIZURES

REACTIONS (4)
  - Fatigue [None]
  - Stupor [None]
  - Somnolence [None]
  - Foot fracture [None]
